FAERS Safety Report 10572932 (Version 1)
Quarter: 2014Q4

REPORT INFORMATION
  Report Type: Spontaneous
  Country: US (occurrence: None)
  Receive Date: 20141107
  Receipt Date: 20141107
  Transmission Date: 20150529
  Serious: No
  Sender: FDA-Public Use
  Company Number: None

PATIENT
  Age: 59 Year
  Sex: Female
  Weight: 79.37 kg

DRUGS (1)
  1. ERBITUX [Suspect]
     Active Substance: CETUXIMAB
     Dosage: PT RECEIVED TOTAL OF 8 CYCLES OUT OF 11.

REACTIONS (3)
  - Rash [None]
  - Infection [None]
  - Abscess [None]

NARRATIVE: CASE EVENT DATE: 20141013
